FAERS Safety Report 15455761 (Version 1)
Quarter: 2018Q4

REPORT INFORMATION
  Report Type: Spontaneous
  Country: AU (occurrence: AU)
  Receive Date: 20181002
  Receipt Date: 20181002
  Transmission Date: 20190204
  Serious: Yes (Hospitalization)
  Sender: FDA-Public Use
  Company Number: AU-JNJFOC-20180816019

PATIENT
  Age: 69 Year
  Sex: Female

DRUGS (1)
  1. INVEGA SUSTENNA [Suspect]
     Active Substance: PALIPERIDONE PALMITATE
     Indication: PRODUCT USED FOR UNKNOWN INDICATION
     Route: 030
     Dates: start: 2017

REACTIONS (6)
  - Mental impairment [Recovered/Resolved]
  - Paranoia [Recovered/Resolved]
  - Product use issue [Unknown]
  - Off label use [Unknown]
  - Agitation [Unknown]
  - Delusion [Recovered/Resolved]
